FAERS Safety Report 9550773 (Version 1)
Quarter: 2013Q3

REPORT INFORMATION
  Report Type: Spontaneous
  Country: US (occurrence: US)
  Receive Date: 20130924
  Receipt Date: 20130924
  Transmission Date: 20140515
  Serious: No
  Sender: FDA-Public Use
  Company Number: US-SANOFI-AVENTIS-2013SA024276

PATIENT
  Age: 43 Year
  Sex: Female

DRUGS (2)
  1. AUBAGIO [Suspect]
     Indication: MULTIPLE SCLEROSIS
     Route: 048
     Dates: start: 201301
  2. AUBAGIO [Suspect]
     Indication: MULTIPLE SCLEROSIS
     Route: 048
     Dates: start: 20130222

REACTIONS (21)
  - Chromaturia [Not Recovered/Not Resolved]
  - Muscle strain [Recovered/Resolved]
  - Nasopharyngitis [Unknown]
  - Vomiting [Unknown]
  - Abdominal discomfort [Recovered/Resolved]
  - Painful defaecation [Recovered/Resolved]
  - Abdominal discomfort [Recovered/Resolved]
  - Decreased appetite [Recovered/Resolved]
  - Oral herpes [Recovered/Resolved]
  - Respiratory disorder [Recovered/Resolved]
  - Anxiety [Recovered/Resolved]
  - Chest pain [Recovered/Resolved]
  - Bronchospasm [Recovered/Resolved]
  - Blood potassium increased [Unknown]
  - White blood cell count increased [Unknown]
  - Fall [Unknown]
  - Cough [Recovered/Resolved]
  - Nausea [Unknown]
  - Diarrhoea [Unknown]
  - Alopecia [Recovered/Resolved]
  - Drug dose omission [Unknown]
